FAERS Safety Report 11975381 (Version 3)
Quarter: 2018Q3

REPORT INFORMATION
  Report Type: Spontaneous
  Country: US (occurrence: US)
  Receive Date: 20160128
  Receipt Date: 20180919
  Transmission Date: 20181010
  Serious: Yes (Hospitalization, Other)
  Sender: FDA-Public Use
  Company Number: US-DSJP-DSU-2015-133619

PATIENT

DRUGS (6)
  1. AMITRIPTYLINE [Concomitant]
     Active Substance: AMITRIPTYLINE
     Indication: PRODUCT USED FOR UNKNOWN INDICATION
     Dosage: 10 MG, BID
     Dates: start: 2010
  2. BENICAR [Suspect]
     Active Substance: OLMESARTAN MEDOXOMIL
     Indication: HYPERTENSION
     Dosage: 40 MG, UNK
  3. GABAPENTIN. [Concomitant]
     Active Substance: GABAPENTIN
     Indication: PRODUCT USED FOR UNKNOWN INDICATION
     Dosage: 600 MG, QID
     Dates: start: 2010
  4. ETHACRYNIC ACID. [Concomitant]
     Active Substance: ETHACRYNIC ACID
     Indication: PRODUCT USED FOR UNKNOWN INDICATION
     Dosage: 25 MG, BID
     Dates: start: 2010
  5. BENICAR [Suspect]
     Active Substance: OLMESARTAN MEDOXOMIL
     Dosage: 20 TO 80 MG PER DAY
     Dates: start: 201102, end: 201503
  6. AZOR [Suspect]
     Active Substance: AMLODIPINE BESYLATE\OLMESARTAN MEDOXOMIL
     Indication: HYPERTENSION
     Dosage: 5?20 MG PER DAY
     Dates: start: 2008, end: 201102

REACTIONS (13)
  - Chronic kidney disease [Unknown]
  - Gastric ulcer [Unknown]
  - Constipation [Unknown]
  - Gastric polyps [Recovered/Resolved]
  - Colitis ulcerative [Unknown]
  - Haemorrhoids [Unknown]
  - Renal cell carcinoma [Unknown]
  - Hiatus hernia [Unknown]
  - Sprue-like enteropathy [Recovering/Resolving]
  - Acute kidney injury [Unknown]
  - Acquired oesophageal web [Unknown]
  - Drug administration error [Unknown]
  - Diverticulitis [Unknown]

NARRATIVE: CASE EVENT DATE: 20110217
